FAERS Safety Report 16343506 (Version 1)
Quarter: 2019Q2

REPORT INFORMATION
  Report Type: Spontaneous
  Country: CN (occurrence: CN)
  Receive Date: 20190522
  Receipt Date: 20190522
  Transmission Date: 20190711
  Serious: Yes (Hospitalization, Other)
  Sender: FDA-Public Use
  Company Number: CN-BAXTER-2019BAX009975

PATIENT
  Age: 33 Year
  Sex: Male
  Weight: 60 kg

DRUGS (5)
  1. 0.9% SODIUM CHLORIDE INJECTION [Suspect]
     Active Substance: SODIUM CHLORIDE
     Dosage: SOLVENT FOR HOLOXAN DAY 1 TO DAY 4
     Route: 041
     Dates: start: 20190228, end: 20190303
  2. ETOPOSIDE. [Suspect]
     Active Substance: ETOPOSIDE
     Indication: CHEMOTHERAPY
     Dosage: DAY 1 TO DAY 4
     Route: 041
     Dates: start: 20190228, end: 20190303
  3. HOLOXAN [Suspect]
     Active Substance: IFOSFAMIDE
     Indication: CHEMOTHERAPY
     Dosage: DAY-1 TO DAY-4
     Route: 041
     Dates: start: 20190228, end: 20190303
  4. CEFOTAXIME SODIUM [Concomitant]
     Active Substance: CEFOTAXIME SODIUM
     Indication: INFECTION PROPHYLAXIS
     Dosage: KAI FU LONG INJECTION (SKIN TEST)
     Route: 041
  5. 0.9% SODIUM CHLORIDE INJECTION [Suspect]
     Active Substance: SODIUM CHLORIDE
     Indication: MEDICATION DILUTION
     Dosage: SOLVENT FOR ETOPOSIDE, DAY 1 TO DAY 4
     Route: 041
     Dates: start: 20190228, end: 20190303

REACTIONS (1)
  - Bone marrow failure [Recovering/Resolving]

NARRATIVE: CASE EVENT DATE: 20190305
